FAERS Safety Report 8539305-1 (Version None)
Quarter: 2012Q3

REPORT INFORMATION
  Report Type: 
  Country: None (occurrence: None)
  Receive Date: 20120726
  Receipt Date: 20110722
  Transmission Date: 20120928
  Serious: No
  Sender: FDA-Public Use
  Company Number: US-ASTRAZENECA-2011SE44234

PATIENT
  Age: 52 Year
  Sex: Male
  Weight: 56.7 kg

DRUGS (5)
  1. SEROQUEL XR [Suspect]
     Indication: BIPOLAR DISORDER
     Route: 048
     Dates: start: 20110101, end: 20110701
  2. PROZAC [Concomitant]
  3. DILANTIN [Concomitant]
  4. KLONOPIN [Concomitant]
  5. TETRAZEPAM [Concomitant]

REACTIONS (3)
  - DRUG INEFFECTIVE [None]
  - BIPOLAR DISORDER [None]
  - UP AND DOWN PHENOMENON [None]
